FAERS Safety Report 18711600 (Version 1)
Quarter: 2021Q1

REPORT INFORMATION
  Report Type: Report from Study
  Country: CA (occurrence: CA)
  Receive Date: 20210107
  Receipt Date: 20210107
  Transmission Date: 20210419
  Serious: Yes (Other)
  Sender: FDA-Public Use
  Company Number: CA-GLAXOSMITHKLINE-CA2021GSK001784

PATIENT

DRUGS (1)
  1. BELANTAMAB MAFODOTIN. [Suspect]
     Active Substance: BELANTAMAB MAFODOTIN
     Indication: PLASMA CELL MYELOMA
     Route: 042

REACTIONS (4)
  - Keratic precipitates [Unknown]
  - Corneal epithelial microcysts [Unknown]
  - Corneal epithelial microcysts [Unknown]
  - Corneal pigmentation [Unknown]

NARRATIVE: CASE EVENT DATE: 20201121
